FAERS Safety Report 7387460-1 (Version None)
Quarter: 2011Q1

REPORT INFORMATION
  Report Type: 
  Country: None (occurrence: None)
  Receive Date: 20110331
  Receipt Date: 20110321
  Transmission Date: 20110831
  Serious: Yes (Hospitalization, Other)
  Sender: FDA-Public Use
  Company Number: US-ELI_LILLY_AND_COMPANY-US201103006889

PATIENT
  Sex: Female

DRUGS (11)
  1. METFORMIN HCL [Concomitant]
     Dosage: UNK
  2. JANUVIA [Concomitant]
  3. HUMALOG [Suspect]
     Indication: DIABETES MELLITUS
     Dosage: 5 U, BID
     Dates: start: 20060101
  4. HUMALOG [Suspect]
     Dosage: 8 U, EACH EVENING
     Dates: start: 20060101
  5. HUMALOG [Suspect]
     Dosage: 8 U, EACH EVENING
     Dates: start: 20060101
  6. HUMALOG [Suspect]
     Dosage: 8 U, EACH EVENING
     Dates: start: 20010101, end: 20060101
  7. LANTUS [Concomitant]
     Dosage: 36 U, QD
  8. HUMALOG [Suspect]
     Dosage: 5 U, BID
     Dates: start: 20060101
  9. HUMALOG [Suspect]
     Dosage: 8 U, EACH EVENING
     Dates: start: 20060101
  10. HUMALOG [Suspect]
     Dosage: 5 U, BID
     Dates: start: 20010101, end: 20060101
  11. HUMALOG [Suspect]
     Dosage: 5 U, BID
     Dates: start: 20060101

REACTIONS (15)
  - HYPOGLYCAEMIC SEIZURE [None]
  - DEPRESSED LEVEL OF CONSCIOUSNESS [None]
  - BLOOD GLUCOSE INCREASED [None]
  - PAIN [None]
  - GAIT DISTURBANCE [None]
  - DEVICE MALFUNCTION [None]
  - HYPOGLYCAEMIC COMA [None]
  - FALL [None]
  - DYSKINESIA [None]
  - MEDICAL DEVICE PAIN [None]
  - INCORRECT DOSE ADMINISTERED [None]
  - MOBILITY DECREASED [None]
  - HIP FRACTURE [None]
  - BLOOD GLUCOSE DECREASED [None]
  - PRODUCT QUALITY ISSUE [None]
